FAERS Safety Report 17210432 (Version 2)
Quarter: 2020Q1

REPORT INFORMATION
  Report Type: Spontaneous
  Country: US (occurrence: US)
  Receive Date: 20191227
  Receipt Date: 20200207
  Transmission Date: 20200409
  Serious: Yes (Hospitalization, Other)
  Sender: FDA-Public Use
  Company Number: US-JNJFOC-20191236537

PATIENT
  Age: 33 Year
  Sex: Male

DRUGS (3)
  1. QUETIAPINE. [Concomitant]
     Active Substance: QUETIAPINE
     Indication: PRODUCT USED FOR UNKNOWN INDICATION
     Route: 065
  2. GABAPENTIN. [Concomitant]
     Active Substance: GABAPENTIN
     Indication: PRODUCT USED FOR UNKNOWN INDICATION
     Route: 065
  3. PARACETAMOL [Suspect]
     Active Substance: ACETAMINOPHEN
     Indication: PAIN
     Dosage: TAKING 50, 500 MG ACETAMINOPHEN TABLETS OVER THE PRECEDING TWO DAYS; IN TOTAL
     Route: 065

REACTIONS (7)
  - Hepatotoxicity [Recovering/Resolving]
  - Intentional overdose [Unknown]
  - Blood lactic acid increased [Unknown]
  - Systemic inflammatory response syndrome [Unknown]
  - Blood bicarbonate decreased [Unknown]
  - International normalised ratio increased [Recovered/Resolved]
  - Electrocardiogram QT prolonged [Unknown]
